FAERS Safety Report 8439282-8 (Version None)
Quarter: 2012Q2

REPORT INFORMATION
  Report Type: 
  Country: None (occurrence: None)
  Receive Date: 20120615
  Receipt Date: 20120608
  Transmission Date: 20120825
  Serious: Yes (Other)
  Sender: FDA-Public Use
  Company Number: PHHY2012CO017850

PATIENT
  Sex: Male

DRUGS (1)
  1. TASIGNA [Suspect]
     Indication: CHRONIC MYELOID LEUKAEMIA
     Dosage: 300 MG, BID
     Route: 048

REACTIONS (5)
  - DERMATOSIS [None]
  - PRURITUS [None]
  - QUALITY OF LIFE DECREASED [None]
  - FOLLICULITIS [None]
  - SKIN FISSURES [None]
